FAERS Safety Report 5737138-2 (Version None)
Quarter: 2008Q2

REPORT INFORMATION
  Report Type: 
  Country: None (occurrence: None)
  Receive Date: 20080514
  Receipt Date: 20080506
  Transmission Date: 20081010
  Serious: Yes (Other)
  Sender: FDA-Public Use
  Company Number: US-ASTRAZENECA-2006UW08769

PATIENT
  Age: 538 Month
  Sex: Female
  Weight: 78.2 kg

DRUGS (5)
  1. SEROQUEL [Suspect]
     Indication: PSYCHOTIC DISORDER
     Route: 048
     Dates: start: 20000101
  2. SEROQUEL [Suspect]
     Route: 048
     Dates: start: 20000101
  3. RISPERDAL [Suspect]
     Indication: BIPOLAR DISORDER
     Dates: start: 20000101, end: 20050401
  4. RISPERDAL [Suspect]
     Dates: start: 20070501
  5. THORAZINE [Concomitant]
     Dates: start: 20030101, end: 20040101

REACTIONS (3)
  - DIABETES MELLITUS [None]
  - HEPATIC CIRRHOSIS [None]
  - LIVER DISORDER [None]
